FAERS Safety Report 5857225-8 (Version None)
Quarter: 2008Q3

REPORT INFORMATION
  Report Type: 
  Country: None (occurrence: None)
  Receive Date: 20080821
  Receipt Date: 20080812
  Transmission Date: 20090109
  Serious: Yes (Other)
  Sender: FDA-Public Use
  Company Number: 2008AP000276

PATIENT
  Age: 30 Year
  Sex: Male

DRUGS (14)
  1. PAROXETINE HCL [Suspect]
     Dosage: 20 MG;PO; QD; 60 MG; PO; QD;  50 MG, 37 MG; PO;  QD;  SYR; PO QD;
     Route: 048
     Dates: start: 20001020, end: 20041111
  2. PAROXETINE HCL [Suspect]
     Dosage: 20 MG;PO; QD; 60 MG; PO; QD;  50 MG, 37 MG; PO;  QD;  SYR; PO QD;
     Route: 048
     Dates: start: 20001120
  3. PAROXETINE HCL [Suspect]
     Dosage: 20 MG;PO; QD; 60 MG; PO; QD;  50 MG, 37 MG; PO;  QD;  SYR; PO QD;
     Route: 048
     Dates: start: 20010601
  4. PAROXETINE HCL [Suspect]
     Dosage: 20 MG;PO; QD; 60 MG; PO; QD;  50 MG, 37 MG; PO;  QD;  SYR; PO QD;
     Route: 048
     Dates: start: 20020117
  5. PAROXETINE HCL [Suspect]
     Dosage: 20 MG;PO; QD; 60 MG; PO; QD;  50 MG, 37 MG; PO;  QD;  SYR; PO QD;
     Route: 048
     Dates: start: 20020221
  6. PAROXETINE HCL [Suspect]
     Dosage: 20 MG;PO; QD; 60 MG; PO; QD;  50 MG, 37 MG; PO;  QD;  SYR; PO QD;
     Route: 048
     Dates: start: 20030717
  7. PAROXETINE HCL [Suspect]
     Dosage: 20 MG;PO; QD; 60 MG; PO; QD;  50 MG, 37 MG; PO;  QD;  SYR; PO QD;
     Route: 048
     Dates: start: 20031010
  8. PAROXETINE HCL [Suspect]
     Dosage: 20 MG;PO; QD; 60 MG; PO; QD;  50 MG, 37 MG; PO;  QD;  SYR; PO QD;
     Route: 048
     Dates: start: 20040827
  9. DOSULEPIN (DOSULEPIN) [Concomitant]
  10. FLUOXETINE HCL [Concomitant]
  11. REBOXETINE (REBOXETINE) [Concomitant]
  12. DIAZEPAM [Concomitant]
  13. LORAZEPAM [Concomitant]
  14. LORMETAZEPAM (LORMETAZEPAM) [Concomitant]

REACTIONS (73)
  - ABDOMINAL DISTENSION [None]
  - ABNORMAL DREAMS [None]
  - ACNE [None]
  - AGGRESSION [None]
  - AGITATION [None]
  - AKATHISIA [None]
  - ANGER [None]
  - ANXIETY [None]
  - ARTHRALGIA [None]
  - ATAXIA [None]
  - BLOOD CREATINE PHOSPHOKINASE INCREASED [None]
  - COGNITIVE DISORDER [None]
  - CONDITION AGGRAVATED [None]
  - CONSTIPATION [None]
  - COORDINATION ABNORMAL [None]
  - DECREASED APPETITE [None]
  - DEPERSONALISATION [None]
  - DEPRESSION [None]
  - DIARRHOEA [None]
  - DISTURBANCE IN ATTENTION [None]
  - DIZZINESS [None]
  - DRUG DEPENDENCE [None]
  - DRUG INEFFECTIVE [None]
  - DRUG INTOLERANCE [None]
  - DRUG WITHDRAWAL SYNDROME [None]
  - DRY MOUTH [None]
  - DYSARTHRIA [None]
  - DYSSOMNIA [None]
  - ENERGY INCREASED [None]
  - EYE PAIN [None]
  - FATIGUE [None]
  - FLASHBACK [None]
  - FLIGHT OF IDEAS [None]
  - FOOD CRAVING [None]
  - FUNGAL INFECTION [None]
  - GAIT DISTURBANCE [None]
  - GASTROOESOPHAGEAL REFLUX DISEASE [None]
  - HALLUCINATION, AUDITORY [None]
  - HEADACHE [None]
  - HOSTILITY [None]
  - HYPERHIDROSIS [None]
  - HYPERSOMNIA [None]
  - ILL-DEFINED DISORDER [None]
  - IMPULSIVE BEHAVIOUR [None]
  - INFECTION [None]
  - INSOMNIA [None]
  - INTENTIONAL SELF-INJURY [None]
  - IRRITABILITY [None]
  - LETHARGY [None]
  - MEMORY IMPAIRMENT [None]
  - MERYCISM [None]
  - MIGRAINE [None]
  - MOOD ALTERED [None]
  - MOOD SWINGS [None]
  - MUSCULOSKELETAL PAIN [None]
  - NECK PAIN [None]
  - NERVOUS SYSTEM DISORDER [None]
  - ORTHOSTATIC HYPOTENSION [None]
  - PALPITATIONS [None]
  - PANIC ATTACK [None]
  - PANIC REACTION [None]
  - PARAESTHESIA [None]
  - PARANOIA [None]
  - PERSONALITY CHANGE [None]
  - SLEEP DISORDER [None]
  - SUICIDAL IDEATION [None]
  - TACHYCARDIA [None]
  - TACHYPHRENIA [None]
  - THINKING ABNORMAL [None]
  - TINNITUS [None]
  - TREMOR [None]
  - WEIGHT DECREASED [None]
  - WEIGHT INCREASED [None]
